FAERS Safety Report 9791782 (Version 2)
Quarter: 2014Q1

REPORT INFORMATION
  Report Type: Spontaneous
  Country: BG (occurrence: BG)
  Receive Date: 20140102
  Receipt Date: 20140102
  Transmission Date: 20141002
  Serious: Yes (Hospitalization, Other)
  Sender: FDA-Public Use
  Company Number: BG-009507513-1312BGR009355

PATIENT
  Age: 65 Year
  Sex: Female

DRUGS (4)
  1. TEMODAL [Suspect]
     Indication: GLIOBLASTOMA
     Dosage: 200 MG, QD
     Route: 048
  2. TEMODAL [Suspect]
     Dosage: 100 MG, QD
     Route: 048
  3. DEPAKIN [Concomitant]
     Dosage: 1 DF, BID
     Route: 048
  4. DEPAKIN [Concomitant]
     Dosage: 1 DF, QD
     Route: 048

REACTIONS (3)
  - Biliary cirrhosis [Not Recovered/Not Resolved]
  - Acute hepatic failure [Recovered/Resolved with Sequelae]
  - Malignant neoplasm progression [Unknown]
